FAERS Safety Report 14924757 (Version 1)
Quarter: 2018Q2

REPORT INFORMATION
  Report Type: Spontaneous
  Country: US (occurrence: US)
  Receive Date: 20180522
  Receipt Date: 20180522
  Transmission Date: 20180711
  Serious: No
  Sender: FDA-Public Use
  Company Number: US-ALEXION PHARMACEUTICALS INC.-A201805270

PATIENT
  Age: 51 Year
  Sex: Male

DRUGS (1)
  1. STRENSIQ [Suspect]
     Active Substance: ASFOTASE ALFA
     Indication: HYPOPHOSPHATASIA
     Dosage: UNK,UNK
     Route: 058
     Dates: start: 20180403, end: 20180419

REACTIONS (5)
  - Headache [Unknown]
  - Nausea [Unknown]
  - Injection site swelling [Unknown]
  - Pruritus [Unknown]
  - Injection site erythema [Unknown]
